FAERS Safety Report 7606912-X (Version None)
Quarter: 2011Q3

REPORT INFORMATION
  Report Type: 
  Country: None (occurrence: None)
  Receive Date: 20110713
  Receipt Date: 20110709
  Transmission Date: 20111222
  Serious: Yes (Hospitalization)
  Sender: FDA-Public Use
  Company Number: US-BRISTOL-MYERS SQUIBB COMPANY-14456800

PATIENT
  Age: 65 Year
  Sex: Male

DRUGS (9)
  1. IPILIMUMAB [Suspect]
     Indication: MALIGNANT MELANOMA
     Route: 042
     Dates: start: 20080624, end: 20081209
  2. LEVETIRACETAM [Concomitant]
     Dosage: FORMULATION-TABS
  3. PROCHLORPERAZINE MALEATE [Concomitant]
     Dosage: FORMULATION-TABS
     Route: 048
  4. ZITHROMAX [Concomitant]
     Dosage: FORMULATION-TABS,DAY 2 TO 5
     Route: 048
  5. ATORVASTATIN [Concomitant]
  6. FLOMAX [Concomitant]
     Dosage: FORMULATION-CAPSULES
     Route: 048
  7. LORAZEPAM [Concomitant]
     Dosage: FORMULATION-TABS 6-8HRS - 1TABS
     Route: 048
  8. PROSCAR [Concomitant]
  9. RANITIDINE HCL [Concomitant]
     Dosage: FORMULATION-TABS
     Route: 048

REACTIONS (7)
  - MUSCULOSKELETAL STIFFNESS [None]
  - SINUSITIS [None]
  - HYPONATRAEMIA [None]
  - ADRENAL INSUFFICIENCY [None]
  - CONFUSIONAL STATE [None]
  - CONJUNCTIVITIS [None]
  - PYREXIA [None]
